FAERS Safety Report 8056657-X (Version None)
Quarter: 2012Q1

REPORT INFORMATION
  Report Type: 
  Country: None (occurrence: None)
  Receive Date: 20120119
  Receipt Date: 20120116
  Transmission Date: 20120608
  Serious: Yes (Death)
  Sender: FDA-Public Use
  Company Number: RU-JNJFOC-20120102818

PATIENT
  Sex: Male
  Weight: 85 kg

DRUGS (4)
  1. ABIRATERONE ACETATE [Suspect]
     Indication: PROSTATE CANCER METASTATIC
     Route: 048
     Dates: start: 20111111
  2. PREDNISOLONE [Suspect]
     Indication: PROSTATE CANCER METASTATIC
     Route: 065
     Dates: start: 20111111
  3. PREDNISOLONE [Suspect]
     Route: 065
  4. ABIRATERONE ACETATE [Suspect]
     Route: 048

REACTIONS (1)
  - DISEASE PROGRESSION [None]
